FAERS Safety Report 20254611 (Version 6)
Quarter: 2022Q2

REPORT INFORMATION
  Report Type: Spontaneous
  Country: CA (occurrence: CA)
  Receive Date: 20211230
  Receipt Date: 20220527
  Transmission Date: 20220720
  Serious: Yes (Other)
  Sender: FDA-Public Use
  Company Number: CA-CELLTRION INC.-2021CA013054

PATIENT

DRUGS (20)
  1. INFLIXIMAB [Suspect]
     Active Substance: INFLIXIMAB
     Indication: Rheumatoid arthritis
     Dosage: 120 MILLIGRAM PER MILLILITRE, EVERY 2 WEEKS
     Route: 058
     Dates: start: 20210902
  2. INFLIXIMAB [Suspect]
     Active Substance: INFLIXIMAB
     Dosage: 120 MILLIGRAM PER MILLILITRE, EVERY 2 WEEKS
     Route: 058
     Dates: start: 20211125
  3. INFLIXIMAB [Suspect]
     Active Substance: INFLIXIMAB
     Dosage: UNK
  4. INFLIXIMAB [Suspect]
     Active Substance: INFLIXIMAB
     Dosage: MOST RECENT
     Dates: start: 20211223
  5. INFLIXIMAB [Suspect]
     Active Substance: INFLIXIMAB
     Dosage: 120 MILLIGRAM PER MILLILITRE, EVERY 2 WEEKS (NEXT INJECTION IS DUE TOMORROW MAY 19TH 2022)
     Route: 058
     Dates: start: 20220519
  6. METHOTREXATE [Concomitant]
     Active Substance: METHOTREXATE
     Dosage: UNK
     Dates: start: 201711
  7. LEFLUNOMIDE [Concomitant]
     Active Substance: LEFLUNOMIDE
     Dosage: UNK
     Dates: start: 201806
  8. COUMADIN [Concomitant]
     Active Substance: WARFARIN SODIUM
     Dosage: UNK
  9. PREDNISONE [Concomitant]
     Active Substance: PREDNISONE
     Dosage: UNK
  10. IRBESARTAN [Concomitant]
     Active Substance: IRBESARTAN
     Dosage: UNK
  11. FOLIC ACID [Concomitant]
     Active Substance: FOLIC ACID
     Dosage: UNK
  12. CALCIUM [Concomitant]
     Active Substance: CALCIUM
     Dosage: UNK
  13. PANTOPRAZOLE [Concomitant]
     Active Substance: PANTOPRAZOLE
     Dosage: UNK
  14. VITAMIN D [Concomitant]
     Active Substance: VITAMIN D NOS
     Dosage: UNK
  15. PLAQUENIL [Concomitant]
     Active Substance: HYDROXYCHLOROQUINE SULFATE
     Dosage: UNK
     Dates: start: 201711
  16. SULFASALAZINE [Concomitant]
     Active Substance: SULFASALAZINE
     Dosage: UNK
     Dates: start: 20210603
  17. HYDROXYCHLOROQUINE [Concomitant]
     Active Substance: HYDROXYCHLOROQUINE
  18. ALBUTEROL [Concomitant]
     Active Substance: ALBUTEROL
  19. ARNUITY ELLIPTA [Concomitant]
     Active Substance: FLUTICASONE FUROATE
  20. SHINGRIX [Concomitant]
     Active Substance: RECOMBINANT VARICELLA ZOSTER VIRUS (VZV) GLYCOPROTEIN E
     Dosage: UNK
     Dates: start: 20220413

REACTIONS (22)
  - Pneumothorax [Unknown]
  - Loss of consciousness [Unknown]
  - Rib fracture [Unknown]
  - Dysphonia [Recovered/Resolved]
  - Hypoaesthesia oral [Recovered/Resolved]
  - Productive cough [Recovering/Resolving]
  - Rhinorrhoea [Recovered/Resolved]
  - Musculoskeletal chest pain [Unknown]
  - Arthropod sting [Unknown]
  - Illness [Recovered/Resolved]
  - Dry skin [Unknown]
  - Cough [Recovered/Resolved]
  - Oropharyngeal pain [Recovered/Resolved]
  - Injection site pain [Recovered/Resolved]
  - Headache [Unknown]
  - Nausea [Unknown]
  - Dizziness [Unknown]
  - Erythema [Unknown]
  - Fatigue [Unknown]
  - Chills [Unknown]
  - Bronchitis [Recovering/Resolving]
  - Treatment delayed [Unknown]

NARRATIVE: CASE EVENT DATE: 20211125
